FAERS Safety Report 16812743 (Version 2)
Quarter: 2019Q3

REPORT INFORMATION
  Report Type: Spontaneous
  Country: US (occurrence: US)
  Receive Date: 20190916
  Receipt Date: 20190927
  Transmission Date: 20191005
  Serious: Yes (Other)
  Sender: FDA-Public Use
  Company Number: US-AKORN PHARMACEUTICALS-2019AKN01933

PATIENT
  Age: 16 Year
  Sex: Female
  Weight: 63.49 kg

DRUGS (3)
  1. MYORISAN [Suspect]
     Active Substance: ISOTRETINOIN
     Indication: ACNE CYSTIC
     Dosage: 40 MG, 1X/DAY
     Dates: start: 20190430, end: 20190730
  2. CLARAVIS [Suspect]
     Active Substance: ISOTRETINOIN
     Indication: ACNE CYSTIC
     Dosage: 30 MG, 1X/DAY
     Dates: start: 20181206, end: 2019
  3. TRINESSA LO [Concomitant]
     Active Substance: ETHINYL ESTRADIOL\NORGESTIMATE
     Dosage: 0.18/0.215/0.25MG-25MCG

REACTIONS (5)
  - Fatigue [Unknown]
  - Mood altered [Unknown]
  - Off label use [Recovered/Resolved]
  - Anger [Unknown]
  - Back pain [Unknown]

NARRATIVE: CASE EVENT DATE: 20190430
